FAERS Safety Report 5040154-X (Version None)
Quarter: 2006Q2

REPORT INFORMATION
  Report Type: 
  Country: None (occurrence: None)
  Receive Date: 20060630
  Receipt Date: 20060406
  Transmission Date: 20061013
  Serious: Yes (Death, Hospitalization)
  Sender: FDA-Public Use
  Company Number: 2006AC00690

PATIENT
  Age: 29602 Day
  Sex: Male
  Weight: 60.4 kg

DRUGS (9)
  1. LOGASTRIC [Suspect]
     Indication: GASTRODUODENAL ULCER
     Route: 048
     Dates: start: 20051213
  2. LOGASTRIC [Suspect]
     Route: 048
     Dates: start: 20051213
  3. TILDIEM RETARD [Concomitant]
     Indication: HYPERTENSION
     Dosage: STARTED SINCE A FEW MONTHS
     Route: 048
     Dates: end: 20060118
  4. COVERSYL [Concomitant]
     Indication: HYPERTENSION
     Dosage: STARTED SINCE A FEW MONTHS
     Route: 048
     Dates: end: 20060118
  5. CORUNO [Concomitant]
     Indication: ANGINA PECTORIS
     Dosage: STARTED SINCE A FEW MONTHS
     Route: 048
     Dates: end: 20060118
  6. ASAFLOW [Concomitant]
     Dosage: STARTED SINCE A FEW MONTHS
     Route: 048
     Dates: end: 20060118
  7. SIPRALEXA [Concomitant]
     Indication: DEPRESSION
     Route: 048
     Dates: start: 20051220, end: 20060118
  8. LOFTYL [Concomitant]
     Route: 048
     Dates: end: 20060118
  9. PERSANTINE [Concomitant]
     Route: 048
     Dates: end: 20060118

REACTIONS (6)
  - ATRIAL FIBRILLATION [None]
  - DEHYDRATION [None]
  - GENERAL PHYSICAL HEALTH DETERIORATION [None]
  - NEPHRITIS INTERSTITIAL [None]
  - NEPHROANGIOSCLEROSIS [None]
  - RENAL FAILURE ACUTE [None]
